FAERS Safety Report 15207031 (Version 1)
Quarter: 2018Q3

REPORT INFORMATION
  Report Type: Spontaneous
  Country: US (occurrence: US)
  Receive Date: 20180628
  Receipt Date: 20180628
  Transmission Date: 20181010
  Serious: Yes (Other)
  Sender: FDA-Public Use
  Company Number: None

PATIENT
  Age: 55 Year
  Sex: Male
  Weight: 83.7 kg

DRUGS (1)
  1. VARENICLINE [Suspect]
     Active Substance: VARENICLINE
     Indication: SMOKING CESSATION THERAPY
     Route: 048

REACTIONS (3)
  - Peripheral swelling [None]
  - Impaired work ability [None]
  - Pain in extremity [None]

NARRATIVE: CASE EVENT DATE: 20180622
